FAERS Safety Report 4974556-4 (Version None)
Quarter: 2006Q2

REPORT INFORMATION
  Report Type: 
  Country: None (occurrence: None)
  Receive Date: 20060410
  Receipt Date: 20060328
  Transmission Date: 20061013
  Serious: Yes (Other)
  Sender: FDA-Public Use
  Company Number: 2006044462

PATIENT
  Age: 69 Year
  Sex: Female

DRUGS (6)
  1. AZULFIDINE EN-TABS [Suspect]
     Indication: ILL-DEFINED DISORDER
     Dosage: 1000 MG (500 MG, 2 IN 1 D), ORAL
     Route: 048
     Dates: start: 20060307, end: 20060313
  2. VOLTAREN-XR [Suspect]
     Indication: ILL-DEFINED DISORDER
     Dosage: 750 MG (375 MG, 2 IN 1 D), ORAL
     Route: 048
     Dates: start: 19990101
  3. OPALMON (LIMAPROST) [Suspect]
     Indication: ILL-DEFINED DISORDER
     Dosage: 15 MCG (5 MCG, 3 IN 1 D), ORAL
     Route: 048
     Dates: start: 20030101
  4. ADETPHOS (ADENOSINE TRIPHOSPHATE, DISODIUM SALT) [Suspect]
     Indication: ILL-DEFINED DISORDER
     Dosage: ORAL
     Route: 048
  5. STOMIN A (NICOTINAMIDE, PAPAVERINE HYDROCHLORIDE) [Suspect]
     Indication: ILL-DEFINED DISORDER
     Dosage: ORAL
     Route: 048
  6. AMARYL [Suspect]
     Indication: ILL-DEFINED DISORDER
     Dosage: 3 MG (1 MG, 3 IN 1 D), ORAL
     Route: 048

REACTIONS (6)
  - APATHY [None]
  - DEPRESSION [None]
  - HEADACHE [None]
  - OEDEMA PERIPHERAL [None]
  - SOMNOLENCE [None]
  - URINARY RETENTION [None]
